FAERS Safety Report 12867511 (Version 1)
Quarter: 2016Q4

REPORT INFORMATION
  Report Type: Spontaneous
  Country: FR (occurrence: FR)
  Receive Date: 20161020
  Receipt Date: 20161020
  Transmission Date: 20170207
  Serious: Yes (Other)
  Sender: FDA-Public Use
  Company Number: FR-INGENUS PHARMACEUTICALS NJ, LLC-ING201610-000069

PATIENT
  Age: 86 Year
  Sex: Male

DRUGS (7)
  1. VILDAGLIPTIN [Suspect]
     Active Substance: VILDAGLIPTIN
  2. CARISOPRODOL AND ASPIRIN [Suspect]
     Active Substance: ASPIRIN\CARISOPRODOL
  3. RIVASTIGMINE. [Suspect]
     Active Substance: RIVASTIGMINE
  4. RAMIPRIL. [Suspect]
     Active Substance: RAMIPRIL
  5. SIMVASTATIN. [Suspect]
     Active Substance: SIMVASTATIN
  6. LEVOTHYROXINE. [Suspect]
     Active Substance: LEVOTHYROXINE
  7. METFORMIN [Suspect]
     Active Substance: METFORMIN HYDROCHLORIDE

REACTIONS (1)
  - Pemphigoid [Unknown]
